FAERS Safety Report 6123450-4 (Version None)
Quarter: 2009Q1

REPORT INFORMATION
  Report Type: 
  Country: None (occurrence: None)
  Receive Date: 20090318
  Receipt Date: 20090310
  Transmission Date: 20090719
  Serious: Yes (Hospitalization)
  Sender: FDA-Public Use
  Company Number: JP-BAYER-200910056BYL

PATIENT
  Age: 65 Year
  Sex: Male
  Weight: 52 kg

DRUGS (3)
  1. EOB PRIMOVIST INJ. SYRINGE [Suspect]
     Indication: BILE DUCT CANCER
     Dosage: TOTAL DAILY DOSE: 5.2 ML
     Route: 042
     Dates: start: 20080701, end: 20080701
  2. GEMZAR [Suspect]
     Indication: BILE DUCT CANCER
     Route: 065
     Dates: start: 20080701, end: 20080707
  3. TS-1 [Suspect]
     Indication: BILE DUCT CANCER
     Route: 048
     Dates: start: 20080701, end: 20080707

REACTIONS (1)
  - RENAL DISORDER [None]
